FAERS Safety Report 15096736 (Version 1)
Quarter: 2018Q3

REPORT INFORMATION
  Report Type: Spontaneous
  Country: US (occurrence: US)
  Receive Date: 20180702
  Receipt Date: 20180702
  Transmission Date: 20181010
  Serious: No
  Sender: FDA-Public Use
  Company Number: US-LNK INTERNATIONAL, INC.-2051163

PATIENT
  Age: 18 Year
  Sex: Female

DRUGS (1)
  1. COLD AND FLU DAYTIME, NIGHTTIME SEVERE [Suspect]
     Active Substance: ACETAMINOPHEN\DEXTROMETHORPHAN HYDROBROMIDE\DOXYLAMINE SUCCINATE\GUAIFENESIN\PHENYLEPHRINE HYDROCHLORIDE
     Indication: OROPHARYNGEAL PAIN

REACTIONS (2)
  - Pharyngeal oedema [None]
  - Urticaria [None]
